FAERS Safety Report 4630915-0 (Version None)
Quarter: 2005Q2

REPORT INFORMATION
  Report Type: 
  Country: None (occurrence: None)
  Receive Date: 20050407
  Receipt Date: 20050407
  Transmission Date: 20051028
  Serious: Yes (Hospitalization)
  Sender: FDA-Public Use
  Company Number: None

PATIENT
  Age: 60 Year
  Sex: Female

DRUGS (2)
  1. PACLITAXEL [Suspect]
     Indication: NON-SMALL CELL LUNG CANCER
     Dosage: 345 MG IN 0.9 % NS
     Dates: start: 20050407
  2. PACLITAXEL [Suspect]
     Dosage: 500 ML

REACTIONS (3)
  - DYSPNOEA [None]
  - FEELING ABNORMAL [None]
  - FLUSHING [None]
